FAERS Safety Report 9352560 (Version 4)
Quarter: 2018Q4

REPORT INFORMATION
  Report Type: Report from Study
  Country: US (occurrence: US)
  Receive Date: 20130618
  Receipt Date: 20181217
  Transmission Date: 20190205
  Serious: Yes (Hospitalization, Other)
  Sender: FDA-Public Use
  Company Number: US-ROCHE-1236182

PATIENT
  Age: 45 Year
  Sex: Female
  Weight: 81.4 kg

DRUGS (5)
  1. CISPLATIN. [Suspect]
     Active Substance: CISPLATIN
     Indication: OVARIAN CANCER
     Dosage: FOR CYCLE 1 AND 2, LAST DOSE PRIOR TO SAE: 25/APR/2013
     Route: 033
     Dates: start: 20130403
  2. PACLITAXEL. [Suspect]
     Active Substance: PACLITAXEL
     Dosage: FOR CYCLE 1 AND 2
     Route: 033
  3. PACLITAXEL. [Suspect]
     Active Substance: PACLITAXEL
     Indication: OVARIAN CANCER
     Route: 042
     Dates: start: 20130403
  4. BEVACIZUMAB. [Suspect]
     Active Substance: BEVACIZUMAB
     Indication: OVARIAN CANCER
     Dosage: FOR CYCLE 2 AND 7, LAST DOSE PRIOR TO SAE: 24/APR/2013
     Route: 042
  5. VELIPARIB [Suspect]
     Active Substance: VELIPARIB
     Indication: OVARIAN CANCER
     Dosage: 250 MG BID ON DAYS -2-5, FOR CYCLE 1 AND 2, LAST DOSE PRIOR TO SAE: 25/APR/2013
     Route: 048
     Dates: start: 20130403

REACTIONS (14)
  - Anaemia [Unknown]
  - Vomiting [Unknown]
  - Diarrhoea [Recovered/Resolved]
  - Device related infection [Unknown]
  - Hyponatraemia [Unknown]
  - Supraventricular tachycardia [Unknown]
  - Dehydration [Unknown]
  - Device related infection [Unknown]
  - Hyponatraemia [Unknown]
  - Neutrophil count decreased [Unknown]
  - Large intestinal obstruction [Recovered/Resolved]
  - Hypokalaemia [Unknown]
  - Nausea [Unknown]
  - Hypokalaemia [Unknown]

NARRATIVE: CASE EVENT DATE: 20130501
